FAERS Safety Report 23847880 (Version 2)
Quarter: 2024Q2

REPORT INFORMATION
  Report Type: Spontaneous
  Country: RU (occurrence: RU)
  Receive Date: 20240513
  Receipt Date: 20240620
  Transmission Date: 20240716
  Serious: Yes (Other)
  Sender: FDA-Public Use
  Company Number: RU-Merck Healthcare KGaA-2024024464

PATIENT
  Age: 37 Year
  Sex: Male

DRUGS (3)
  1. METFORMIN HYDROCHLORIDE [Suspect]
     Active Substance: METFORMIN HYDROCHLORIDE
     Indication: Diabetes mellitus
     Dosage: PRESCRIBED BY THE DOCTOR FOR DIABETES MELLITUS FOR 3-4 YEARS.?AT NIGHT
     Route: 048
     Dates: start: 2020
  2. METFORMIN HYDROCHLORIDE [Suspect]
     Active Substance: METFORMIN HYDROCHLORIDE
     Dosage: FIRST 1000 MG AT NIGHT, THEN THE DOCTOR ADDED A MORNING DOSE OF 500 MG
     Route: 048
  3. METFORMIN HYDROCHLORIDE [Suspect]
     Active Substance: METFORMIN HYDROCHLORIDE
     Dosage: FIRST 1000 MG AT NIGHT, ADDED A MORNING DOSE OF 500 MG, THEN ADDED ANOTHER 1500 MG IN THE EVENING
     Route: 048
     Dates: end: 202403

REACTIONS (7)
  - Ketoacidosis [Recovered/Resolved]
  - Blood glucose increased [Recovered/Resolved]
  - Feeling hot [Recovered/Resolved]
  - Dry skin [Recovered/Resolved]
  - Thirst [Recovered/Resolved]
  - Product physical issue [Unknown]
  - Drug ineffective [Recovered/Resolved]
